FAERS Safety Report 12927811 (Version 1)
Quarter: 2016Q4

REPORT INFORMATION
  Report Type: Other
  Country: GR (occurrence: GR)
  Receive Date: 20161109
  Receipt Date: 20161109
  Transmission Date: 20170207
  Serious: No
  Sender: FDA-Public Use
  Company Number: GR-JUBILANT GENERICS LIMITED-1059396

PATIENT
  Sex: Female

DRUGS (1)
  1. VALSARTAN. [Suspect]
     Active Substance: VALSARTAN

REACTIONS (7)
  - Foetal growth restriction [Recovered/Resolved]
  - Caesarean section [None]
  - Acute kidney injury [None]
  - Oligohydramnios [Recovered/Resolved]
  - Foetal exposure during pregnancy [Recovered/Resolved]
  - Renal impairment [Recovered/Resolved]
  - Premature baby [None]

NARRATIVE: CASE EVENT DATE: 20161024
